FAERS Safety Report 18393410 (Version 1)
Quarter: 2020Q4

REPORT INFORMATION
  Report Type: Spontaneous
  Country: TR (occurrence: TR)
  Receive Date: 20201016
  Receipt Date: 20201016
  Transmission Date: 20210114
  Serious: Yes (Other)
  Sender: FDA-Public Use
  Company Number: TR-SUN PHARMACEUTICAL INDUSTRIES LTD-2020RR-264348

PATIENT
  Age: 56 Year
  Sex: Male

DRUGS (6)
  1. AMBROXOL HYDROCHLORIDE\GUAIFENESIN [Suspect]
     Active Substance: AMBROXOL HYDROCHLORIDE\GUAIFENESIN
     Indication: COUGH
     Dosage: UNK
     Route: 065
  2. MILK THISTLE [Suspect]
     Active Substance: DIETARY SUPPLEMENT\HERBALS\MILK THISTLE
     Indication: COUGH
     Dosage: UNK
     Route: 065
  3. POWDER CURCUMIN [Suspect]
     Active Substance: CURCUMIN\DIETARY SUPPLEMENT
     Indication: COUGH
     Dosage: UNK
     Route: 065
  4. VARDENAPHILE [Suspect]
     Active Substance: VARDENAFIL DIHYDROCHLORIDE
     Indication: COUGH
     Dosage: UNK
     Route: 065
  5. GLUCOSAMINE [Suspect]
     Active Substance: GLUCOSAMINE
     Indication: COUGH
     Dosage: UNK
     Route: 065
  6. UMCA SYRUP [Suspect]
     Active Substance: HERBALS
     Indication: COUGH
     Dosage: UNK
     Route: 065

REACTIONS (1)
  - Drug-induced liver injury [Unknown]
